FAERS Safety Report 14111258 (Version 1)
Quarter: 2017Q4

REPORT INFORMATION
  Report Type: Report from Study
  Country: FR (occurrence: FR)
  Receive Date: 20171020
  Receipt Date: 20171020
  Transmission Date: 20180321
  Serious: Yes (Death, Hospitalization)
  Sender: FDA-Public Use
  Company Number: FR-TEVA-815869ROM

PATIENT
  Sex: Male

DRUGS (4)
  1. SOFOSBUVIR [Suspect]
     Active Substance: SOFOSBUVIR
     Indication: HEPATITIS C
     Dosage: 400MG
     Route: 065
  2. RIBAVIRIN. [Suspect]
     Active Substance: RIBAVIRIN
     Indication: HEPATITIS C
     Dosage: PER DAY
     Route: 065
  3. DACLATASVIR. [Suspect]
     Active Substance: DACLATASVIR
     Indication: HEPATITIS C
     Dosage: 60MG
     Route: 065
  4. SIMEPREVIR [Suspect]
     Active Substance: SIMEPREVIR
     Indication: HEPATITIS C
     Dosage: 150MG
     Route: 065

REACTIONS (8)
  - Peritonitis bacterial [Fatal]
  - Mitochondrial toxicity [Unknown]
  - Acute on chronic liver failure [Unknown]
  - Pancreatitis acute [Unknown]
  - Off label use [Unknown]
  - Acute kidney injury [Unknown]
  - Sepsis [Fatal]
  - Ascites [Unknown]
